FAERS Safety Report 8298531-X (Version None)
Quarter: 2012Q2

REPORT INFORMATION
  Report Type: 
  Country: None (occurrence: None)
  Receive Date: 20120419
  Receipt Date: 20110613
  Transmission Date: 20120825
  Serious: No
  Sender: FDA-Public Use
  Company Number: US-ABBOTT-11P-163-0732970-00

PATIENT
  Sex: Female
  Weight: 53.118 kg

DRUGS (1)
  1. LUPRON DEPOT-PED [Suspect]
     Indication: PRECOCIOUS PUBERTY
     Route: 030
     Dates: start: 20110321

REACTIONS (5)
  - SLEEP DISORDER [None]
  - NIGHTMARE [None]
  - CRYING [None]
  - AFFECT LABILITY [None]
  - EMOTIONAL DISTRESS [None]
